FAERS Safety Report 8362558 (Version 3)
Quarter: 2013Q1

REPORT INFORMATION
  Report Type: Spontaneous
  Country: US (occurrence: US)
  Receive Date: 20120130
  Receipt Date: 20130213
  Transmission Date: 20140127
  Serious: Yes (Other)
  Sender: FDA-Public Use
  Company Number: US-PFIZER INC-2011232706

PATIENT
  Age: 74 Year
  Sex: Male
  Weight: 95.2 kg

DRUGS (15)
  1. LYRICA [Suspect]
     Indication: NERVOUS SYSTEM DISORDER
     Dosage: 300 MG (4 CAPSULES OF 75 MG), DAILY
  2. LYRICA [Suspect]
     Dosage: 150 MG (2 CAPSULES OF 75 MG), DAILY
     Route: 048
     Dates: start: 20120121
  3. LYRICA [Suspect]
     Dosage: 75 MG, 3X/DAY
     Route: 048
  4. DOXYCYCLINE [Concomitant]
     Indication: STAPHYLOCOCCAL INFECTION
     Dosage: UNK
  5. ASA [Concomitant]
     Dosage: UNK
  6. CALCITRIOL [Concomitant]
     Dosage: UNK
  7. CALCIUM [Concomitant]
     Dosage: UNK
  8. FERROUS SULFATE [Concomitant]
     Dosage: UNK
  9. FISH OIL [Concomitant]
     Dosage: UNK
  10. LEVOTHYROXINE [Concomitant]
     Dosage: UNK
  11. MEVACOR [Concomitant]
     Dosage: UNK
  12. NIACIN [Concomitant]
     Dosage: UNK
  13. PERCOCET [Concomitant]
     Dosage: UNK
  14. VITAMIN D [Concomitant]
     Dosage: UNK
  15. VOLTAREN [Concomitant]
     Dosage: UNK

REACTIONS (2)
  - Joint range of motion decreased [Not Recovered/Not Resolved]
  - Arthritis [Not Recovered/Not Resolved]
